FAERS Safety Report 6835597-5 (Version None)
Quarter: 2010Q3

REPORT INFORMATION
  Report Type: 
  Country: None (occurrence: None)
  Receive Date: 20100713
  Receipt Date: 20100704
  Transmission Date: 20110219
  Serious: Yes (Other)
  Sender: FDA-Public Use
  Company Number: IT-JNJFOC-20100701595

PATIENT
  Age: 21 Year
  Sex: Female

DRUGS (1)
  1. TOPAMAX [Suspect]
     Indication: SELF INJURIOUS BEHAVIOUR
     Route: 048

REACTIONS (3)
  - INTENTIONAL OVERDOSE [None]
  - MYALGIA [None]
  - SELF INJURIOUS BEHAVIOUR [None]
